FAERS Safety Report 25802232 (Version 1)
Quarter: 2025Q3

REPORT INFORMATION
  Report Type: Spontaneous
  Country: US (occurrence: US)
  Receive Date: 20250915
  Receipt Date: 20250915
  Transmission Date: 20251021
  Serious: Yes (Hospitalization, Other)
  Sender: MAIA PHARMACEUTICALS
  Company Number: US-MAI-MAI202509-000156

PATIENT
  Age: 71 Year
  Sex: Female

DRUGS (4)
  1. BACLOFEN [Suspect]
     Active Substance: BACLOFEN
     Indication: Multiple sclerosis
     Route: 037
  2. BACLOFEN [Suspect]
     Active Substance: BACLOFEN
     Route: 037
  3. CLONIDINE [Concomitant]
     Active Substance: CLONIDINE
     Indication: Multiple sclerosis
     Route: 037
  4. CLONIDINE [Concomitant]
     Active Substance: CLONIDINE
     Route: 037

REACTIONS (10)
  - Pulseless electrical activity [Recovered/Resolved]
  - Unresponsive to stimuli [Recovered/Resolved]
  - Toxicity to various agents [Recovered/Resolved]
  - Hypothermia [Unknown]
  - Hypotension [Unknown]
  - Bradycardia [Unknown]
  - Coma [Recovered/Resolved]
  - Generalised tonic-clonic seizure [Recovered/Resolved]
  - Overdose [Recovered/Resolved]
  - Product use in unapproved indication [Recovered/Resolved]
